FAERS Safety Report 24201220 (Version 1)
Quarter: 2024Q3

REPORT INFORMATION
  Report Type: Spontaneous
  Country: NL (occurrence: NL)
  Receive Date: 20240812
  Receipt Date: 20240812
  Transmission Date: 20241016
  Serious: Yes (Other)
  Sender: MYLAN
  Company Number: None

PATIENT
  Age: 54 Year
  Sex: Female
  Weight: 83 kg

DRUGS (9)
  1. DOXORUBICIN [Suspect]
     Active Substance: DOXORUBICIN
     Indication: Breast cancer
     Dosage: 1 DOSAGE FORM, Q3W (1 TIME EVERY 3 WEEKS IN COMBINATION WITH DOCETAXEL / CYCLOFOSFAMIDE)
     Route: 042
     Dates: start: 20150116
  2. CIPROFLOXACIN [Suspect]
     Active Substance: CIPROFLOXACIN
     Indication: Prophylaxis
     Dosage: 1000 MILLIGRAM, QD (DAY 5 DAY 14 2 TIMES A DAY 1 TABLET (INTERVAL SCHEDULE 3 WEEKS))
     Route: 048
     Dates: start: 20150120
  3. DOCETAXEL [Suspect]
     Active Substance: DOCETAXEL\DOCETAXEL ANHYDROUS
     Indication: Breast cancer
     Dosage: 1 DOSAGE FORM, Q3W (EXTRA INFO 1 TIME EVERY 3 WEEKS (SCHEDULE IN COMBINATION WITH DOCETAXEL / CYCLOF
     Route: 042
     Dates: start: 20150116
  4. METOCLOPRAMIDE [Suspect]
     Active Substance: METOCLOPRAMIDE
     Indication: Prophylaxis
     Dosage: 10 MILLIGRAM, QD (IF NEEDED MAXIMAL 3 TIMES A DAY 1 SUPPOSITORY)
     Route: 054
     Dates: start: 20150116
  5. EMEND [Suspect]
     Active Substance: APREPITANT
     Indication: Prophylaxis
     Dosage: 1 DOSAGE FORM, QD (DAY 1,2,3, 1 TIME A DAY (REPEAT 1 TIME EVERY 3 WEEKS) (1X125MG/2X80MG))
     Route: 048
     Dates: start: 20150116
  6. METOCLOPRAMIDE HYDROCHLORIDE [Suspect]
     Active Substance: METOCLOPRAMIDE HYDROCHLORIDE
     Indication: Prophylaxis
     Dosage: 10 MILLIGRAM, QD (IF NEEDED MAXIMAL 3 TIMES A DAY 1 TABLET)
     Route: 048
     Dates: start: 20150116
  7. CYCLOPHOSPHAMIDE [Suspect]
     Active Substance: CYCLOPHOSPHAMIDE
     Indication: Breast cancer
     Dosage: 1 DOSAGE FORM, Q3W (1 TIME EVERY 3 WEEKS IN COMBINATION WITH DOCETAXEL / DOXORUBICIN)
     Route: 042
     Dates: start: 20150116
  8. NEULASTA [Suspect]
     Active Substance: PEGFILGRASTIM
     Indication: Prophylaxis
     Dosage: 1 DOSAGE FORM, Q3W (1 TIME EVERY 3 WEEKS)
     Route: 058
     Dates: start: 20150117
  9. DEXAMETHASONE [Suspect]
     Active Substance: DEXAMETHASONE
     Indication: Prophylaxis
     Dosage: 4 MILLIGRAM, Q3W (3 DAYS 2 TIMES A DAY / 1 TIME EVERY 3 WEEKS)
     Route: 048
     Dates: start: 20150115

REACTIONS (1)
  - Hypoacusis [Not Recovered/Not Resolved]

NARRATIVE: CASE EVENT DATE: 20150201
